FAERS Safety Report 20350328 (Version 1)
Quarter: 2022Q1

REPORT INFORMATION
  Report Type: Report from Study
  Country: KR (occurrence: KR)
  Receive Date: 20220119
  Receipt Date: 20220119
  Transmission Date: 20220423
  Serious: Yes (Hospitalization, Other)
  Sender: FDA-Public Use
  Company Number: KR-GLAXOSMITHKLINE-KR2022GSK008282

PATIENT
  Age: 31 Year
  Sex: Female
  Weight: 63 kg

DRUGS (22)
  1. BELIMUMAB [Suspect]
     Active Substance: BELIMUMAB
     Indication: Systemic lupus erythematosus
     Dosage: 600 SINGLE DOSE
     Route: 042
     Dates: start: 20211008, end: 20211008
  2. BELIMUMAB [Suspect]
     Active Substance: BELIMUMAB
     Dosage: 600 SINGLE DOSE
     Route: 042
     Dates: start: 20211022, end: 20211022
  3. BELIMUMAB [Suspect]
     Active Substance: BELIMUMAB
     Dosage: 600 SINGLE DOSE
     Route: 042
     Dates: start: 20211105, end: 20211105
  4. BELIMUMAB [Suspect]
     Active Substance: BELIMUMAB
     Dosage: 600 SINGLE DOSE
     Route: 042
     Dates: start: 20211203, end: 20211203
  5. BELIMUMAB [Suspect]
     Active Substance: BELIMUMAB
     Dosage: 600 SINGLE DOSE
     Route: 042
     Dates: start: 20211231, end: 20211231
  6. PREDNISOLONE [Concomitant]
     Active Substance: PREDNISOLONE
     Dosage: 30, QD
     Route: 048
     Dates: start: 20211126, end: 20211203
  7. PREDNISOLONE [Concomitant]
     Active Substance: PREDNISOLONE
     Dosage: 10, QD
     Route: 048
     Dates: start: 20211126, end: 20211203
  8. PREDNISOLONE [Concomitant]
     Active Substance: PREDNISOLONE
     Dosage: 25, QD
     Route: 048
     Dates: start: 20211203, end: 20211230
  9. PREDNISOLONE [Concomitant]
     Active Substance: PREDNISOLONE
     Dosage: 5, QD
     Route: 048
     Dates: start: 20211203, end: 20211230
  10. PREDNISOLONE [Concomitant]
     Active Substance: PREDNISOLONE
     Dosage: 20, QD
     Route: 048
     Dates: start: 20211231
  11. PREDNISOLONE [Concomitant]
     Active Substance: PREDNISOLONE
     Dosage: 2.5
     Route: 048
     Dates: start: 20211231
  12. ANAPROX [Concomitant]
     Active Substance: NAPROXEN SODIUM
     Dosage: 275, QD
     Route: 048
     Dates: start: 20210917, end: 20211122
  13. METHYLPREDNISOLONE [Concomitant]
     Active Substance: METHYLPREDNISOLONE
     Dosage: 8, QD
     Route: 048
     Dates: start: 20210917, end: 20211122
  14. HYDROXYCHLOROQUINE SULFATE [Concomitant]
     Active Substance: HYDROXYCHLOROQUINE SULFATE
     Dosage: 100, QD
     Route: 048
     Dates: start: 20210702
  15. HYDROXYCHLOROQUINE SULFATE [Concomitant]
     Active Substance: HYDROXYCHLOROQUINE SULFATE
     Dosage: 200, QD
     Route: 048
     Dates: start: 20210701
  16. METHOTREXATE [Concomitant]
     Active Substance: METHOTREXATE
     Dosage: 10, QD
     Route: 048
     Dates: start: 20210702, end: 20211124
  17. NEWHYALUNI [Concomitant]
     Indication: Dry eye
     Dosage: 0.45, QD
     Route: 050
     Dates: start: 20211203
  18. PARAMACET SEMI [Concomitant]
     Indication: Pain
     Dosage: 18.75/162.5, QD
     Route: 048
     Dates: start: 20211203
  19. OMED [Concomitant]
     Indication: Gastrointestinal disorder prophylaxis
     Dosage: 10, BID
     Route: 048
     Dates: start: 20211203
  20. K-CAB [Concomitant]
     Indication: Gastrointestinal disorder
     Dosage: 50, QD
     Route: 048
     Dates: start: 20210625, end: 20211203
  21. FEROBA-YOU SR [Concomitant]
     Indication: Iron deficiency anaemia
     Dosage: 256, QD
     Route: 048
     Dates: start: 20210721
  22. FOLIC ACID [Concomitant]
     Active Substance: FOLIC ACID
     Indication: Folate deficiency
     Dosage: 1, QD
     Route: 048
     Dates: start: 20210625, end: 20211124

REACTIONS (1)
  - Lupus nephritis [Recovering/Resolving]

NARRATIVE: CASE EVENT DATE: 20220103
